FAERS Safety Report 8294957-9 (Version None)
Quarter: 2012Q2

REPORT INFORMATION
  Report Type: 
  Country: None (occurrence: None)
  Receive Date: 20120418
  Receipt Date: 20120409
  Transmission Date: 20120825
  Serious: Yes (Other)
  Sender: FDA-Public Use
  Company Number: US-JNJFOC-20120404771

PATIENT
  Sex: Male
  Weight: 81.65 kg

DRUGS (10)
  1. DURAGESIC-100 [Suspect]
     Route: 062
     Dates: start: 19950101
  2. DURAGESIC-100 [Suspect]
     Route: 062
     Dates: start: 20110101
  3. DURAGESIC-100 [Suspect]
     Dosage: 2002 TO 2004/2005
     Route: 062
     Dates: start: 20020101
  4. DURAGESIC-100 [Suspect]
     Dosage: 2005/2006 TO 2008/2009
     Route: 062
  5. DURAGESIC-100 [Suspect]
     Indication: BACK DISORDER
     Dosage: 400 UG/HR PATCH (100 UG/HR/APPLY 4 PATCHES)
     Route: 062
  6. DURAGESIC-100 [Suspect]
     Dosage: 2005/2006 TO 2008/2009
     Route: 062
  7. DURAGESIC-100 [Suspect]
     Route: 062
     Dates: start: 19950101
  8. DURAGESIC-100 [Suspect]
     Indication: INTERVERTEBRAL DISC PROTRUSION
     Dosage: 2002 TO 2004/2005
     Route: 062
     Dates: start: 20020101
  9. DURAGESIC-100 [Suspect]
     Dosage: 400 UG/HR PATCH (100 UG/HR/APPLY 4 PATCHES)
     Route: 062
  10. DURAGESIC-100 [Suspect]
     Route: 062
     Dates: start: 20110101

REACTIONS (6)
  - DRUG INEFFECTIVE [None]
  - DRUG TOLERANCE [None]
  - ADVERSE EVENT [None]
  - PRODUCT QUALITY ISSUE [None]
  - LYMPHOMA [None]
  - DRUG EFFECT INCREASED [None]
